FAERS Safety Report 17848670 (Version 3)
Quarter: 2020Q2

REPORT INFORMATION
  Report Type: Spontaneous
  Country: CA (occurrence: CA)
  Receive Date: 20200602
  Receipt Date: 20200611
  Transmission Date: 20200714
  Serious: Yes (Other)
  Sender: FDA-Public Use
  Company Number: CA-CELLTRION INC.-2020CA021491

PATIENT

DRUGS (5)
  1. INFLECTRA [Suspect]
     Active Substance: INFLIXIMAB-DYYB
     Dosage: 5 MG/KG WEEK 0, 2, 6 WEEKS, THE EVERY 8 WEEKS
     Route: 042
     Dates: start: 20200416
  2. INFLECTRA [Suspect]
     Active Substance: INFLIXIMAB-DYYB
     Indication: COLITIS ULCERATIVE
     Dosage: 5 MG/KG WEEK 0, 2, 6 WEEKS, THE EVERY 8 WEEKS
     Route: 042
     Dates: start: 20200330
  3. INFLECTRA [Suspect]
     Active Substance: INFLIXIMAB-DYYB
     Dosage: 5 MG/KG WEEK 0, 2, 6 WEEKS, THE EVERY 8 WEEKS
     Route: 042
     Dates: start: 20200527
  4. INFLECTRA [Suspect]
     Active Substance: INFLIXIMAB-DYYB
     Dosage: 5 MG/KG WEEK 0, 2, 6 WEEKS, THE EVERY 8 WEEKS
     Route: 042
     Dates: start: 20200416
  5. INFLECTRA [Suspect]
     Active Substance: INFLIXIMAB-DYYB
     Dosage: 5 MG/KG WEEK 0, 2, 6 WEEKS, THE EVERY 8 WEEKS
     Route: 042
     Dates: start: 20200416

REACTIONS (9)
  - Pyrexia [Unknown]
  - Blood pressure increased [Unknown]
  - Intentional product use issue [Unknown]
  - Cough [Unknown]
  - Nausea [Recovered/Resolved]
  - Dyspnoea [Unknown]
  - Headache [Recovered/Resolved]
  - Taste disorder [Recovered/Resolved]
  - Off label use [Unknown]

NARRATIVE: CASE EVENT DATE: 20200330
